FAERS Safety Report 15498648 (Version 1)
Quarter: 2018Q4

REPORT INFORMATION
  Report Type: Spontaneous
  Country: US (occurrence: US)
  Receive Date: 20181005
  Receipt Date: 20181005
  Transmission Date: 20190205
  Serious: No
  Sender: FDA-Public Use
  Company Number: None

PATIENT
  Age: 71 Year
  Sex: Female

DRUGS (3)
  1. MYCOPHENOLATE [Concomitant]
     Active Substance: MYCOPHENOLIC ACID
  2. TACROLIMUS CAP 1MG [Suspect]
     Active Substance: TACROLIMUS
     Indication: RENAL TRANSPLANT
     Dates: start: 201609
  3. VOSEVI [Concomitant]
     Active Substance: SOFOSBUVIR\VELPATASVIR\VOXILAPREVIR

REACTIONS (4)
  - Fatigue [None]
  - Drug level below therapeutic [None]
  - Mobility decreased [None]
  - Therapy change [None]

NARRATIVE: CASE EVENT DATE: 20181004
